FAERS Safety Report 10216839 (Version 3)
Quarter: 2016Q2

REPORT INFORMATION
  Report Type: Spontaneous
  Country: US (occurrence: US)
  Receive Date: 20140604
  Receipt Date: 20160414
  Transmission Date: 20160815
  Serious: Yes (Hospitalization, Other)
  Sender: FDA-Public Use
  Company Number: US-BAYER-2014-083213

PATIENT
  Age: 19 Year
  Sex: Female
  Weight: 45.35 kg

DRUGS (4)
  1. DOXYCYCLINE [DOXYCYCLINE HYDROCHLORIDE] [Concomitant]
     Dosage: 100 MG, UNK 1 TAB(S) 2 TIMES A DAY
  2. ZITHROMAX [Concomitant]
     Active Substance: AZITHROMYCIN DIHYDRATE
     Dosage: 250 MG, UNK 4 ONE DOSE
  3. MIRENA [Suspect]
     Active Substance: LEVONORGESTREL
     Indication: CONTRACEPTION
     Dosage: 20 MCG/24HR, CONT
     Route: 015
     Dates: start: 200904, end: 20101102
  4. FLAGYL [Concomitant]
     Active Substance: METRONIDAZOLE\METRONIDAZOLE HYDROCHLORIDE
     Dosage: 500 MG, UNK

REACTIONS (6)
  - Procedural pain [Not Recovered/Not Resolved]
  - Pelvic inflammatory disease [None]
  - Uterine perforation [None]
  - Post procedural discomfort [Not Recovered/Not Resolved]
  - Injury [None]
  - Abdominal pain lower [None]

NARRATIVE: CASE EVENT DATE: 20101014
